FAERS Safety Report 9868605 (Version 2)
Quarter: 2014Q1

REPORT INFORMATION
  Report Type: Spontaneous
  Country: JP (occurrence: JP)
  Receive Date: 20140204
  Receipt Date: 20140217
  Transmission Date: 20141002
  Serious: Yes (Hospitalization)
  Sender: FDA-Public Use
  Company Number: PHHY2014JP012563

PATIENT
  Age: 74 Year
  Sex: Male
  Weight: 68 kg

DRUGS (9)
  1. CLOPIDOGREL [Suspect]
     Indication: ANTIPLATELET THERAPY
     Dosage: 75 MG, DAILY
  2. ACETYLSALICYLIC ACID [Suspect]
     Indication: ANTIPLATELET THERAPY
     Dosage: 100 MG, DAILY
  3. THIAMYLAL [Concomitant]
     Dosage: 200 MG, UNK
  4. FENTANYL [Concomitant]
     Dosage: 100 UG, UNK
  5. FENTANYL [Concomitant]
     Dosage: 400 UG, UNK
  6. REMIFENTANIL [Concomitant]
     Dosage: 0.4 UG/KG, PER MIN
  7. REMIFENTANIL [Concomitant]
     Dosage: 0.05 TO 0.25 UG/KG PER MIN
  8. VECURONIUM [Concomitant]
     Indication: HYPOTONIA
     Dosage: 8 MG, UNK
  9. SEVOFLURANE [Concomitant]
     Dosage: 1-1.2 PERCENT

REACTIONS (2)
  - Procedural haemorrhage [Recovered/Resolved]
  - Platelet count decreased [Recovered/Resolved]
